FAERS Safety Report 12892092 (Version 1)
Quarter: 2016Q4

REPORT INFORMATION
  Report Type: Spontaneous
  Country: US (occurrence: US)
  Receive Date: 20161028
  Receipt Date: 20161028
  Transmission Date: 20170207
  Serious: Yes (Hospitalization, Other)
  Sender: FDA-Public Use
  Company Number: US-ROCHE-1846418

PATIENT
  Age: 71 Year
  Sex: Female

DRUGS (11)
  1. NEXIUM [Concomitant]
     Active Substance: ESOMEPRAZOLE MAGNESIUM
  2. PREDNISONE. [Concomitant]
     Active Substance: PREDNISONE
  3. TRAMADOL. [Concomitant]
     Active Substance: TRAMADOL
  4. XOLAIR [Suspect]
     Active Substance: OMALIZUMAB
     Indication: PRODUCT USED FOR UNKNOWN INDICATION
     Route: 065
  5. PROAIR (ALBUTEROL) [Concomitant]
  6. CEFDINIR. [Concomitant]
     Active Substance: CEFDINIR
  7. MONTELUKAST [Concomitant]
     Active Substance: MONTELUKAST SODIUM
  8. TYLENOL [Concomitant]
     Active Substance: ACETAMINOPHEN
  9. XOLAIR [Suspect]
     Active Substance: OMALIZUMAB
     Route: 065
     Dates: start: 20161003
  10. SPIRIVA [Concomitant]
     Active Substance: TIOTROPIUM BROMIDE MONOHYDRATE
  11. COZAAR [Concomitant]
     Active Substance: LOSARTAN POTASSIUM

REACTIONS (16)
  - Pain of skin [Unknown]
  - Ear pain [Unknown]
  - Neck pain [Unknown]
  - Bronchospasm [Unknown]
  - Fluid retention [Unknown]
  - Cardiac disorder [Unknown]
  - Anxiety [Unknown]
  - Pharyngeal oedema [Unknown]
  - Arthritis [Unknown]
  - Oxygen saturation decreased [Unknown]
  - Hypertension [Unknown]
  - Dyspnoea [Unknown]
  - Influenza like illness [Unknown]
  - Pyrexia [Unknown]
  - Arthralgia [Unknown]
  - Tremor [Unknown]

NARRATIVE: CASE EVENT DATE: 20161003
